FAERS Safety Report 4386938-2 (Version None)
Quarter: 2004Q2

REPORT INFORMATION
  Report Type: 
  Country: None (occurrence: None)
  Receive Date: 20040625
  Receipt Date: 20040617
  Transmission Date: 20050107
  Serious: Yes (Disabling)
  Sender: FDA-Public Use
  Company Number: K200400901

PATIENT
  Age: 78 Year
  Sex: Female

DRUGS (3)
  1. ALTACE [Suspect]
     Indication: CARDIAC FAILURE CONGESTIVE
     Dosage: 5 MG, QD,ORAL
     Route: 048
     Dates: start: 20031213, end: 20040317
  2. FUROSEMIDE [Concomitant]
  3. ASPIRIN [Concomitant]

REACTIONS (4)
  - COUGH [None]
  - DRY MOUTH [None]
  - HYPOAESTHESIA [None]
  - HYPOTRICHOSIS [None]
